FAERS Safety Report 4358743-4 (Version None)
Quarter: 2004Q2

REPORT INFORMATION
  Report Type: 
  Country: None (occurrence: None)
  Receive Date: 20040511
  Receipt Date: 20040428
  Transmission Date: 20050107
  Serious: Yes (Death)
  Sender: FDA-Public Use
  Company Number: 2004028509

PATIENT
  Age: 49 Year
  Sex: Male
  Weight: 73 kg

DRUGS (6)
  1. PRAZOSIN HCL [Suspect]
     Indication: HYPERTENSION
     Dosage: 5 MG (5 MG, 1 IN 1 D), ORAL
     Route: 048
     Dates: start: 19930101
  2. PEGINTERFERONA ALFA-2B (PEGINTERFERON ALFA-2B) [Suspect]
     Indication: HEPATITIS C
     Dosage: 75 MCG (75 MCG, 1 IN 1 WK), SUBCUTANEOUS
     Route: 058
     Dates: start: 20030505
  3. CICLETANINE (CICLETANINE) [Suspect]
     Indication: HYPERTENSION
     Dosage: 50 MG (50 MG, 1 IN 1 D), ORAL
     Route: 048
     Dates: start: 19930101
  4. CETIRIZINE HCL [Suspect]
     Dosage: 10 MG (10 MG, 1 IN 1 D), ORAL
     Route: 048
  5. INSULIN LISPRO (INSULIN LISPRO) [Suspect]
     Indication: DIABETES MELLITUS
     Dosage: 21 UNITS (7 UNITS, 3 IN 1 D), SUBCUTANEOUS
     Route: 058
     Dates: start: 20030505
  6. INSULIN HUMAN ZINC SUSPENSION (INSULIN HUMAN ZINC SUSPENSION) [Suspect]
     Indication: DIABETES MELLITUS
     Dosage: BID (12 UNITS, 2 IN 1 D), SUBCUTANEOUS
     Route: 058
     Dates: start: 20030505

REACTIONS (4)
  - CARDIAC DISORDER [None]
  - DIABETES MELLITUS [None]
  - HEPATITIS C [None]
  - MALAISE [None]
